FAERS Safety Report 8936630 (Version 1)
Quarter: 2012Q4

REPORT INFORMATION
  Report Type: 
  Country: US (occurrence: US)
  Receive Date: 20121130
  Receipt Date: 20121130
  Transmission Date: 20130627
  Serious: Yes (Hospitalization)
  Sender: FDA-Public Use
  Company Number: US-JNJFOC-20121111424

PATIENT
  Age: 39 Year
  Sex: Male

DRUGS (2)
  1. ACETAMINOPHEN [Suspect]
     Indication: PRODUCT USED FOR UNKNOWN INDICATION
     Dosage: 500mg of the product 4 times daily for 2 days
     Route: 065
     Dates: start: 20100101, end: 20100102
  2. PERCOCET [OXYCODONE HYDROCHLORIDE,PARACETAMOL] [Suspect]
     Indication: PRODUCT USED FOR UNKNOWN INDICATION
     Dosage: afternoon
     Route: 048
     Dates: start: 20100103

REACTIONS (3)
  - Overdose [Unknown]
  - Drug-induced liver injury [Recovering/Resolving]
  - International normalised ratio increased [Recovering/Resolving]
